FAERS Safety Report 8037126-X (Version None)
Quarter: 2012Q1

REPORT INFORMATION
  Report Type: 
  Country: None (occurrence: None)
  Receive Date: 20120111
  Receipt Date: 20120106
  Transmission Date: 20120608
  Serious: Yes (Other)
  Sender: FDA-Public Use
  Company Number: US-PFIZER INC-2005063311

PATIENT
  Sex: Female
  Weight: 89.342 kg

DRUGS (20)
  1. LOMOTIL [Concomitant]
     Dosage: UNK
     Route: 065
  2. VICODIN ES [Concomitant]
     Dosage: UNK
     Route: 065
  3. ESTRACE [Concomitant]
     Dosage: UNK
     Route: 065
  4. FOLIC ACID [Concomitant]
     Dosage: UNK
     Route: 065
  5. GLUCOTROL [Concomitant]
     Indication: DIABETES MELLITUS
     Dosage: UNK
     Route: 065
  6. SYNTHROID [Concomitant]
     Dosage: UNK
     Route: 065
  7. NEURONTIN [Suspect]
     Indication: RESTLESS LEGS SYNDROME
     Dosage: 600 MG, 1X/DAY
     Route: 048
  8. PROVERA [Concomitant]
     Dosage: UNK
     Route: 065
  9. GABAPENTIN [Suspect]
     Dosage: 600 MG, 1X/DAY
     Route: 048
     Dates: start: 20050401, end: 20050401
  10. MULTI-VITAMINS [Concomitant]
     Dosage: UNK
     Route: 065
  11. DILAUDID [Concomitant]
     Dosage: UNK
     Route: 065
  12. ACETAMINOPHEN W/ CODEINE [Concomitant]
     Dosage: UNK
     Route: 065
  13. NEURONTIN [Suspect]
     Dosage: 300 MG, 2-3 TIMES A DAY
     Dates: start: 20020101
  14. METHOTREXATE [Concomitant]
     Indication: POLYMYALGIA RHEUMATICA
     Dosage: UNK
     Route: 065
  15. XALATAN [Concomitant]
     Dosage: UNK
     Route: 065
  16. ALPRAZOLAM [Concomitant]
     Indication: ABDOMINAL PAIN UPPER
     Dosage: UNK
     Route: 065
  17. ENTEX PSE [Concomitant]
     Dosage: UNK
     Route: 065
  18. GLUCOPHAGE [Concomitant]
     Indication: DIABETES MELLITUS
     Dosage: UNK
     Route: 065
  19. PROPOXYPHENE HCL AND ACETAMINOPHEN [Concomitant]
     Dosage: UNK
     Route: 065
  20. PLAVIX [Concomitant]
     Dosage: UNK

REACTIONS (11)
  - SEDATION [None]
  - SLEEP APNOEA SYNDROME [None]
  - WEIGHT DECREASED [None]
  - ASTHENIA [None]
  - PRODUCT SUBSTITUTION ISSUE [None]
  - FEELING ABNORMAL [None]
  - NERVOUSNESS [None]
  - SOMNOLENCE [None]
  - MYOCARDIAL INFARCTION [None]
  - DRUG INEFFECTIVE [None]
  - FATIGUE [None]
